FAERS Safety Report 4655455-4 (Version None)
Quarter: 2005Q2

REPORT INFORMATION
  Report Type: 
  Country: None (occurrence: None)
  Receive Date: 20050505
  Receipt Date: 20050502
  Transmission Date: 20051028
  Serious: Yes (Other)
  Sender: FDA-Public Use
  Company Number: SUSI-2005-00347

PATIENT
  Age: 62 Year
  Sex: Female

DRUGS (2)
  1. PENTASA [Suspect]
     Indication: COLITIS ULCERATIVE
     Dates: start: 20050101
  2. CONJUGATED ESTROGENS [Suspect]
     Dates: start: 19850101

REACTIONS (6)
  - AGGRESSION [None]
  - COLITIS ULCERATIVE [None]
  - DRUG INTERACTION [None]
  - IRRITABILITY [None]
  - MOOD SWINGS [None]
  - VAGINAL HAEMORRHAGE [None]
